FAERS Safety Report 5991106-4 (Version None)
Quarter: 2008Q4

REPORT INFORMATION
  Report Type: 
  Country: None (occurrence: None)
  Receive Date: 20081211
  Receipt Date: 20081202
  Transmission Date: 20090506
  Serious: Yes (Hospitalization, Other)
  Sender: FDA-Public Use
  Company Number: US-ABBOTT-08P-163-0490295-00

PATIENT
  Sex: Female

DRUGS (6)
  1. HUMIRA [Suspect]
     Indication: PSORIASIS
     Dates: start: 20080616, end: 20080901
  2. FENTANYL-100 [Concomitant]
     Indication: BACK PAIN
  3. LORAZEPAM [Concomitant]
     Indication: BACK PAIN
  4. FUROSEMIDE [Concomitant]
     Indication: DRUG USE FOR UNKNOWN INDICATION
     Dates: start: 20080901
  5. SENNA ALEXANDRINA [Concomitant]
     Indication: DRUG USE FOR UNKNOWN INDICATION
     Dates: start: 20080901
  6. UNKNOWN BLOOD PRESSURE MEDICATION [Concomitant]
     Indication: HYPERTENSION

REACTIONS (7)
  - BRONCHITIS [None]
  - IMMUNOSUPPRESSION [None]
  - INFECTION [None]
  - INFLAMMATION [None]
  - LUNG DISORDER [None]
  - PNEUMONITIS [None]
  - RESPIRATORY DISORDER [None]
